FAERS Safety Report 7283691-X (Version None)
Quarter: 2011Q1

REPORT INFORMATION
  Report Type: 
  Country: None (occurrence: None)
  Receive Date: 20110209
  Receipt Date: 20110128
  Transmission Date: 20110831
  Serious: Yes (Hospitalization)
  Sender: FDA-Public Use
  Company Number: JP-JNJFOC-20110200653

PATIENT
  Age: 57 Year
  Sex: Male
  Weight: 80 kg

DRUGS (7)
  1. REMICADE [Suspect]
     Route: 042
  2. REMICADE [Suspect]
     Route: 042
  3. REMICADE [Suspect]
     Route: 042
  4. REMICADE [Suspect]
     Indication: PUSTULAR PSORIASIS
     Route: 042
  5. CYCLOSPORINE [Concomitant]
     Indication: PUSTULAR PSORIASIS
     Route: 048
  6. DOVONEX [Concomitant]
     Indication: PUSTULAR PSORIASIS
     Route: 048
  7. ANTEBATE [Concomitant]
     Indication: PUSTULAR PSORIASIS
     Route: 048

REACTIONS (1)
  - FUNGAL INFECTION [None]
